FAERS Safety Report 9508815 (Version 1)
Quarter: 2013Q3

REPORT INFORMATION
  Report Type: Spontaneous
  Country: US (occurrence: US)
  Receive Date: 20130909
  Receipt Date: 20130909
  Transmission Date: 20140515
  Serious: No
  Sender: FDA-Public Use
  Company Number: US-BRISTOL-MYERS SQUIBB COMPANY-17418138

PATIENT
  Age: 3 Decade
  Sex: Female

DRUGS (1)
  1. ABILIFY [Suspect]
     Indication: SCHIZOPHRENIA
     Dosage: LOWERED THE PATIENT`S DOSE TO ABILIFY 15 MG.

REACTIONS (1)
  - Akathisia [Recovering/Resolving]
